FAERS Safety Report 7577005-5 (Version None)
Quarter: 2011Q2

REPORT INFORMATION
  Report Type: 
  Country: None (occurrence: None)
  Receive Date: 20110624
  Receipt Date: 20110624
  Transmission Date: 20111010
  Serious: Yes (Hospitalization)
  Sender: FDA-Public Use
  Company Number: None

PATIENT
  Sex: Female

DRUGS (2)
  1. VOTRIENT [Suspect]
     Indication: BREAST CANCER
     Dosage: 800MG QD PO
     Route: 048
     Dates: start: 20110523
  2. VOTRIENT [Suspect]
     Indication: RENAL CANCER
     Dosage: 800MG QD PO
     Route: 048
     Dates: start: 20110523

REACTIONS (2)
  - FAECES DISCOLOURED [None]
  - ABDOMINAL PAIN UPPER [None]
